FAERS Safety Report 19053943 (Version 3)
Quarter: 2021Q3

REPORT INFORMATION
  Report Type: Spontaneous
  Country: GB (occurrence: GB)
  Receive Date: 20210324
  Receipt Date: 20210702
  Transmission Date: 20211014
  Serious: Yes (Hospitalization, Other)
  Sender: FDA-Public Use
  Company Number: GB-SAMSUNG BIOEPIS-SB-2021-07022

PATIENT
  Age: 67 Year
  Sex: Female

DRUGS (32)
  1. PACLITAXEL. [Suspect]
     Active Substance: PACLITAXEL
     Dosage: UNKNOWN
     Route: 065
     Dates: start: 20161124
  2. EXEMESTANE. [Suspect]
     Active Substance: EXEMESTANE
     Indication: BREAST CANCER METASTATIC
     Dosage: TIME INTERVAL BETWEEN BEGINNING OF DRUG ADMINISTRATION AND END OF REACTION/EVENT,25 MILLIGRAM, QD
     Route: 048
     Dates: start: 20160531, end: 20160610
  3. ENOXAPARIN [Concomitant]
     Active Substance: ENOXAPARIN
     Dosage: 20 MILLIGRAMS, DAILY AND PREVENTION OF VENOUS THROMBOEMBOLISM
     Route: 065
     Dates: start: 20160104, end: 20160106
  4. CAPECITABINE. [Suspect]
     Active Substance: CAPECITABINE
     Indication: BREAST CANCER METASTATIC
     Dosage: TIME INTERVAL BETWEEN BEGINNING OF DRUG ADMINISTRATION AND END OF REACTION/EVENT
     Route: 048
     Dates: start: 20161122, end: 20161213
  5. TAMOXIFEN [Suspect]
     Active Substance: TAMOXIFEN
     Indication: BREAST CANCER METASTATIC
     Dosage: 20 MG, QD?TIME INTERVAL BETWEEN BEGINNING OF DRUG ADMINISTRATION AND END OF REACTION/EVENT
     Route: 048
     Dates: start: 20160712, end: 20160802
  6. VORHYALURONIDASE ALFA [Suspect]
     Active Substance: HYALURONIDASE (HUMAN RECOMBINANT)
     Route: 065
     Dates: start: 20160531, end: 20161115
  7. ADALIMUMAB [Suspect]
     Active Substance: ADALIMUMAB
     Indication: PRODUCT USED FOR UNKNOWN INDICATION
     Dosage: 40 MG, Q2W
     Route: 058
  8. ADALIMUMAB [Suspect]
     Active Substance: ADALIMUMAB
     Route: 065
     Dates: start: 20151124
  9. SOLTAMOX [Suspect]
     Active Substance: TAMOXIFEN CITRATE
     Indication: HER2 POSITIVE BREAST CANCER
     Route: 065
  10. ENOXAPARIN [Concomitant]
     Active Substance: ENOXAPARIN
     Indication: EMBOLISM VENOUS
     Dosage: 20 MILLIGRAMS, DAILY AND PREVENTION OF VENOUS THROMBOEMBOLISM
     Route: 058
     Dates: start: 20160104, end: 20160106
  11. OMEPRAZOLE. [Concomitant]
     Active Substance: OMEPRAZOLE
     Indication: PRODUCT USED FOR UNKNOWN INDICATION
     Route: 048
  12. PACLITAXEL. [Suspect]
     Active Substance: PACLITAXEL
     Route: 065
     Dates: start: 20161122
  13. PACLITAXEL. [Suspect]
     Active Substance: PACLITAXEL
     Route: 065
     Dates: start: 20161124
  14. CAPECITABINE. [Suspect]
     Active Substance: CAPECITABINE
     Dosage: TIME INTERVAL BETWEEN BEGINNING OF DRUG ADMINISTRATION AND END OF REACTION/EVENT
     Route: 048
     Dates: start: 20161122, end: 20161213
  15. ENOXAPARIN [Concomitant]
     Active Substance: ENOXAPARIN
     Indication: THROMBOSIS PROPHYLAXIS
     Dosage: 20 MG, QD
     Route: 058
     Dates: start: 20160106
  16. ENOXAPARIN [Concomitant]
     Active Substance: ENOXAPARIN
     Dosage: 20 MG, QD
     Route: 065
     Dates: start: 20160106
  17. OMEPRAZOLE. [Concomitant]
     Active Substance: OMEPRAZOLE
     Route: 048
     Dates: end: 20170530
  18. ADCAL?D3 [Concomitant]
     Active Substance: CALCIUM CARBONATE\CHOLECALCIFEROL
     Indication: PRODUCT USED FOR UNKNOWN INDICATION
     Dosage: 1 DF, QD
     Route: 048
     Dates: start: 20101221, end: 201511
  19. PACLITAXEL. [Suspect]
     Active Substance: PACLITAXEL
     Route: 065
     Dates: start: 20161122
  20. EXEMESTANE. [Suspect]
     Active Substance: EXEMESTANE
     Indication: HER2 POSITIVE BREAST CANCER
     Dosage: UNKNOWN
     Route: 065
     Dates: end: 20160712
  21. TRASTUZUMAB. [Suspect]
     Active Substance: TRASTUZUMAB
     Indication: BREAST CANCER METASTATIC
     Dosage: INJECTION, SOLUTION
     Route: 058
     Dates: start: 20151124, end: 20151221
  22. TRASTUZUMAB. [Suspect]
     Active Substance: TRASTUZUMAB
     Dosage: INJECTION, SOLUTION
     Route: 058
     Dates: start: 20160531, end: 20161115
  23. TRASTUZUMAB. [Suspect]
     Active Substance: TRASTUZUMAB
     Route: 065
     Dates: start: 20151124, end: 20151221
  24. PACLITAXEL. [Suspect]
     Active Substance: PACLITAXEL
     Indication: BREAST CANCER METASTATIC
     Dosage: 141 MG?TIME INTERVAL BETWEEN BEGINNING OF DRUG ADMINISTRATION AND START OF REACTION/EVENT
     Route: 042
     Dates: start: 20151124, end: 20151221
  25. PACLITAXEL. [Suspect]
     Active Substance: PACLITAXEL
     Dosage: 141 MG, UNKNOWN TIME INTERVAL BETWEEN BEGINNING OF DRUG ADMINISTRATION AND START OF REACTION/EVENT
     Route: 065
     Dates: start: 20151124, end: 20151221
  26. PACLITAXEL. [Suspect]
     Active Substance: PACLITAXEL
     Route: 065
     Dates: start: 20151124, end: 20151221
  27. TAMOXIFEN [Suspect]
     Active Substance: TAMOXIFEN
     Indication: HER2 POSITIVE BREAST CANCER
     Route: 065
  28. TAMOXIFEN [Suspect]
     Active Substance: TAMOXIFEN
     Route: 065
  29. ADCAL?D3 [Concomitant]
     Active Substance: CALCIUM CARBONATE\CHOLECALCIFEROL
     Route: 048
     Dates: start: 20101221, end: 201511
  30. CAPECITABINE. [Suspect]
     Active Substance: CAPECITABINE
     Dosage: TIME INTERVAL BETWEEN BEGINNING OF DRUG ADMINISTRATION AND END OF REACTION/EVENT
     Route: 048
     Dates: start: 20161213, end: 20161216
  31. SOLTAMOX [Suspect]
     Active Substance: TAMOXIFEN CITRATE
     Indication: BREAST CANCER METASTATIC
     Route: 065
     Dates: start: 20160712, end: 20160802
  32. VORHYALURONIDASE ALFA [Suspect]
     Active Substance: HYALURONIDASE (HUMAN RECOMBINANT)
     Indication: HER2 POSITIVE BREAST CANCER
     Route: 065
     Dates: start: 20151124, end: 20151221

REACTIONS (5)
  - Sensory loss [Not Recovered/Not Resolved]
  - Asthenia [Not Recovered/Not Resolved]
  - Hypertension [Recovered/Resolved with Sequelae]
  - Balance disorder [Not Recovered/Not Resolved]
  - Cerebral haemorrhage [Recovered/Resolved with Sequelae]

NARRATIVE: CASE EVENT DATE: 20201216
